FAERS Safety Report 8338663-0 (Version None)
Quarter: 2012Q2

REPORT INFORMATION
  Report Type: 
  Country: None (occurrence: None)
  Receive Date: 20120504
  Receipt Date: 20120427
  Transmission Date: 20120825
  Serious: Yes (Hospitalization)
  Sender: FDA-Public Use
  Company Number: US-TEVA-335558USA

PATIENT
  Sex: Female

DRUGS (1)
  1. PARAGARD T 380A [Suspect]
     Indication: CONTRACEPTION
     Route: 015
     Dates: start: 20120427, end: 20120427

REACTIONS (3)
  - SYNCOPE [None]
  - DIZZINESS [None]
  - UTERINE HAEMORRHAGE [None]
